FAERS Safety Report 6966193-7 (Version None)
Quarter: 2010Q3

REPORT INFORMATION
  Report Type: 
  Country: None (occurrence: None)
  Receive Date: 20100903
  Receipt Date: 20100831
  Transmission Date: 20110219
  Serious: Yes (Life-Threatening)
  Sender: FDA-Public Use
  Company Number: PHHY2010NO57551

PATIENT
  Sex: Female

DRUGS (1)
  1. DICLOFENAC [Suspect]
     Dosage: 50 MG, TID
     Dates: start: 20100319, end: 20100326

REACTIONS (4)
  - ERYTHEMA [None]
  - ORAL DISCOMFORT [None]
  - ORAL PAIN [None]
  - PRURITUS GENERALISED [None]
